FAERS Safety Report 10342039 (Version 3)
Quarter: 2014Q3

REPORT INFORMATION
  Report Type: Spontaneous
  Country: US (occurrence: US)
  Receive Date: 20140725
  Receipt Date: 20140916
  Transmission Date: 20150326
  Serious: Yes (Other)
  Sender: FDA-Public Use
  Company Number: US-JNJFOC-20140713266

PATIENT
  Sex: Male
  Weight: 112.04 kg

DRUGS (11)
  1. XARELTO [Suspect]
     Active Substance: RIVAROXABAN
     Indication: ATRIAL FIBRILLATION
     Dosage: 1 TABLET WITH FOOD
     Route: 048
     Dates: start: 20140623
  2. ASPIRIN. [Suspect]
     Active Substance: ASPIRIN
     Indication: ATRIAL FIBRILLATION
     Route: 048
  3. ATENOLOL. [Concomitant]
     Active Substance: ATENOLOL
     Indication: ATRIAL FIBRILLATION
     Route: 048
  4. FUROSEMIDE. [Concomitant]
     Active Substance: FUROSEMIDE
     Dosage: HALF TABLET
     Route: 048
  5. XANAX [Concomitant]
     Active Substance: ALPRAZOLAM
     Route: 048
     Dates: start: 20131009
  6. COQ10 [Concomitant]
     Active Substance: UBIDECARENONE
     Dosage: WITH A MEAL
     Route: 048
  7. PRAVASTATIN SODIUM. [Concomitant]
     Active Substance: PRAVASTATIN SODIUM
     Route: 048
     Dates: start: 20121026
  8. XARELTO [Suspect]
     Active Substance: RIVAROXABAN
     Indication: CEREBROVASCULAR ACCIDENT PROPHYLAXIS
     Dosage: 1 TABLET WITH FOOD
     Route: 048
     Dates: start: 20140623
  9. VENTOLIN [Concomitant]
     Active Substance: ALBUTEROL SULFATE
     Indication: CHRONIC OBSTRUCTIVE PULMONARY DISEASE
     Dosage: AS NEEDED
     Route: 055
  10. AMIODARONE HCL [Concomitant]
     Active Substance: AMIODARONE HYDROCHLORIDE
     Indication: ATRIAL FIBRILLATION
     Route: 048
  11. COLCRYS [Concomitant]
     Active Substance: COLCHICINE
     Dosage: AS DIRECTED
     Route: 048
     Dates: start: 20120831

REACTIONS (5)
  - Nasal necrosis [Unknown]
  - Contusion [Recovered/Resolved]
  - Rash [Not Recovered/Not Resolved]
  - Extremity necrosis [Unknown]
  - Inappropriate schedule of drug administration [Unknown]

NARRATIVE: CASE EVENT DATE: 2014
